FAERS Safety Report 8013419-7 (Version None)
Quarter: 2011Q4

REPORT INFORMATION
  Report Type: 
  Country: None (occurrence: None)
  Receive Date: 20111229
  Receipt Date: 20111011
  Transmission Date: 20120403
  Serious: No
  Sender: FDA-Public Use
  Company Number: US-BAYER-2011-072282

PATIENT
  Age: 5 Year
  Sex: Female
  Weight: 20.408 kg

DRUGS (2)
  1. RID 1-2-3 SYSTEM [Suspect]
     Dosage: USED ONLY ONE TIME
     Route: 061
     Dates: start: 20110805, end: 20110805
  2. RID 1-2-3 SYSTEM [Suspect]
     Dosage: UNK
     Route: 061
     Dates: start: 20110805, end: 20110805

REACTIONS (2)
  - ERYTHEMA [None]
  - SKIN BURNING SENSATION [None]
